FAERS Safety Report 9270837 (Version 1)
Quarter: 2013Q2

REPORT INFORMATION
  Report Type: Spontaneous
  Country: US (occurrence: US)
  Receive Date: 20130503
  Receipt Date: 20130503
  Transmission Date: 20140414
  Serious: No
  Sender: FDA-Public Use
  Company Number: US-ASTRAZENECA-2013SE16508

PATIENT
  Age: 70 Year
  Sex: Female
  Weight: 60.8 kg

DRUGS (1)
  1. METOPROLOL SUCCINATE [Suspect]
     Indication: LABILE HYPERTENSION
     Route: 048
     Dates: start: 20130309

REACTIONS (4)
  - Dizziness [Not Recovered/Not Resolved]
  - Headache [Not Recovered/Not Resolved]
  - Dizziness [Recovered/Resolved]
  - Rhinorrhoea [Unknown]
